FAERS Safety Report 4670245-4 (Version None)
Quarter: 2005Q2

REPORT INFORMATION
  Report Type: 
  Country: None (occurrence: None)
  Receive Date: 20050523
  Receipt Date: 20050322
  Transmission Date: 20051028
  Serious: Yes (Hospitalization)
  Sender: FDA-Public Use
  Company Number: PHHO2005JP04996

PATIENT
  Age: 74 Year
  Sex: Female

DRUGS (9)
  1. LOCHOL [Suspect]
     Indication: HYPERCHOLESTEROLAEMIA
     Dosage: 20 MG, QD
     Route: 048
     Dates: start: 20021024, end: 20040213
  2. TENORMIN [Concomitant]
     Dates: start: 19901119, end: 20030807
  3. NU-LOTAN [Concomitant]
     Indication: HYPERTENSION
  4. HYPOCA [Concomitant]
     Indication: HYPERTENSION
  5. CARDENALIN [Concomitant]
     Indication: HYPERTENSION
  6. LASIX [Concomitant]
     Indication: HYPERTENSION
  7. SALOBEL [Concomitant]
     Indication: HYPERTENSION
     Dates: start: 19900517, end: 20020530
  8. BUFFERIN [Concomitant]
     Indication: AORTIC VALVE INCOMPETENCE
     Dates: start: 19900517, end: 20030220
  9. BAYASPIRIN [Concomitant]
     Indication: AORTIC VALVE INCOMPETENCE

REACTIONS (6)
  - CONCOMITANT DISEASE PROGRESSION [None]
  - DYSPNOEA [None]
  - PALPITATIONS [None]
  - PULMONARY INFARCTION [None]
  - RENAL IMPAIRMENT [None]
  - VENOUS THROMBOSIS LIMB [None]
